FAERS Safety Report 22325693 (Version 1)
Quarter: 2023Q2

REPORT INFORMATION
  Report Type: Spontaneous
  Country: US (occurrence: US)
  Receive Date: 20230516
  Receipt Date: 20230516
  Transmission Date: 20230721
  Serious: No
  Sender: FDA-Public Use
  Company Number: US-MYLANLABS-2023M1042178

PATIENT
  Age: 34 Year
  Sex: Male

DRUGS (1)
  1. FENTANYL TRANSDERMAL SYSTEM [Suspect]
     Active Substance: FENTANYL
     Indication: Product used for unknown indication
     Dosage: 100 MICROGRAM, QH (FOR 72 HOURS)
     Route: 062

REACTIONS (2)
  - Product storage error [Unknown]
  - Product physical issue [Unknown]

NARRATIVE: CASE EVENT DATE: 20230414
